FAERS Safety Report 10060718 (Version 5)
Quarter: 2014Q4

REPORT INFORMATION
  Report Type: Report from Study
  Country: US (occurrence: US)
  Receive Date: 20140404
  Receipt Date: 20141120
  Transmission Date: 20150528
  Serious: Yes (Life-Threatening, Hospitalization)
  Sender: FDA-Public Use
  Company Number: CHPA2014US004822

PATIENT
  Age: 68 Year
  Sex: Female
  Weight: 72.4 kg

DRUGS (24)
  1. GLUCOPHAGE [Concomitant]
     Active Substance: METFORMIN HYDROCHLORIDE
     Dosage: UNK
     Dates: start: 20120119
  2. TYLENOL [Concomitant]
     Active Substance: ACETAMINOPHEN
     Dosage: UNK
     Dates: start: 20100223
  3. COMPAZINE [Concomitant]
     Active Substance: PROCHLORPERAZINE MALEATE
     Dosage: UNK
     Dates: start: 20100303
  4. SOLU-MEDROL [Suspect]
     Active Substance: METHYLPREDNISOLONE SODIUM SUCCINATE
     Indication: PRODUCT USED FOR UNKNOWN INDICATION
     Dosage: UNK
     Route: 065
  5. ALBUTEROL. [Concomitant]
     Active Substance: ALBUTEROL
     Dosage: UNK
  6. HYDROCODONE [Concomitant]
     Active Substance: HYDROCODONE
     Dosage: UNK
     Dates: start: 20131210, end: 20140121
  7. PEPCID [Concomitant]
     Active Substance: FAMOTIDINE
     Dosage: UNK
     Dates: start: 20131217
  8. AVELOX [Concomitant]
     Active Substance: MOXIFLOXACIN HYDROCHLORIDE
     Dosage: UNK
     Dates: start: 20140121
  9. MAGNESIUM AMINO ACID CHELATE [Concomitant]
     Dosage: UNK
     Dates: start: 20131105
  10. LOTENSIN HCT [Concomitant]
     Active Substance: BENAZEPRIL HYDROCHLORIDE\HYDROCHLOROTHIAZIDE
     Dosage: UNK
     Dates: start: 20061218
  11. THERAFLU NOS [Suspect]
     Active Substance: ACETAMINOPHEN AND OR DEXTROMETHORPHAN AND OR DIPHENHYDRAMINE AND OR GUAIFENESIN AND OR PHENYLEPHRINE AND OR PSEUDOEPHEDRINE
     Indication: PRODUCT USED FOR UNKNOWN INDICATION
     Dosage: UNK
     Route: 065
  12. VANCOMYCIN [Suspect]
     Active Substance: VANCOMYCIN
     Indication: INFECTION PROPHYLAXIS
     Dosage: UNK
     Route: 042
     Dates: start: 20140209, end: 20140210
  13. ZOVIRAX [Concomitant]
     Active Substance: ACYCLOVIR
     Dosage: UNK
     Dates: start: 20100315
  14. GLUCOTROL [Concomitant]
     Active Substance: GLIPIZIDE
     Dosage: UNK
     Dates: start: 20131105
  15. CYMBALTA [Concomitant]
     Active Substance: DULOXETINE HYDROCHLORIDE
     Dosage: UNK
     Dates: start: 20110915
  16. LEVEMIR [Concomitant]
     Active Substance: INSULIN DETEMIR
     Dosage: UNK
     Dates: start: 20120120
  17. OMEPRAZOLE. [Concomitant]
     Active Substance: OMEPRAZOLE
     Dosage: UNK
  18. PRAVASTATIN [Concomitant]
     Active Substance: PRAVASTATIN\PRAVASTATIN SODIUM
     Dosage: UNK
  19. IDELALISIB [Suspect]
     Active Substance: IDELALISIB
     Indication: CHRONIC LYMPHOCYTIC LEUKAEMIA
     Dosage: 100 MG, BID
     Route: 048
     Dates: start: 20131126, end: 20140127
  20. IDELALISIB [Suspect]
     Active Substance: IDELALISIB
     Indication: NON-HODGKIN^S LYMPHOMA
  21. NEUPOGEN [Concomitant]
     Active Substance: FILGRASTIM
     Dosage: UNK
     Dates: start: 20130807
  22. NEURONTIN [Concomitant]
     Active Substance: GABAPENTIN
     Dosage: UNK
     Dates: start: 20140106
  23. ZYLOPRIM [Concomitant]
     Active Substance: ALLOPURINOL
     Dosage: UNK
     Dates: start: 20090616
  24. MEDROL [Concomitant]
     Active Substance: METHYLPREDNISOLONE
     Dosage: UNK

REACTIONS (2)
  - Pneumonitis [Recovered/Resolved]
  - Hypoxia [Recovered/Resolved]

NARRATIVE: CASE EVENT DATE: 20140129
